FAERS Safety Report 5190581-5 (Version None)
Quarter: 2006Q4

REPORT INFORMATION
  Report Type: 
  Country: None (occurrence: None)
  Receive Date: 20061222
  Receipt Date: 20060718
  Transmission Date: 20070319
  Serious: No
  Sender: FDA-Public Use
  Company Number: US-BRISTOL-MYERS SQUIBB COMPANY-13446133

PATIENT
  Age: 62 Year
  Sex: Female
  Weight: 91 kg

DRUGS (14)
  1. ORENCIA [Suspect]
     Indication: RHEUMATOID ARTHRITIS
     Route: 042
     Dates: start: 20060630
  2. PLAQUENIL [Concomitant]
  3. METHOTREXATE [Concomitant]
  4. PREDNISONE TAB [Concomitant]
  5. ZYRTEC [Concomitant]
  6. VALTREX [Concomitant]
  7. TIMOPTIC DROPS [Concomitant]
  8. LOTEMAX [Concomitant]
  9. OGEN [Concomitant]
  10. LYRICA [Concomitant]
  11. ACIPHEX [Concomitant]
  12. DULOXETINE HCL [Concomitant]
  13. FOLIC ACID [Concomitant]
  14. OS-CAL [Concomitant]

REACTIONS (2)
  - BACK PAIN [None]
  - FATIGUE [None]
